FAERS Safety Report 8305328-0 (Version None)
Quarter: 2012Q2

REPORT INFORMATION
  Report Type: 
  Country: None (occurrence: None)
  Receive Date: 20120423
  Receipt Date: 20120418
  Transmission Date: 20120825
  Serious: No
  Sender: FDA-Public Use
  Company Number: US-PFIZER INC-2012097165

PATIENT
  Sex: Female
  Weight: 72.562 kg

DRUGS (3)
  1. LYRICA [Suspect]
     Indication: NEUROPATHY PERIPHERAL
     Dosage: 75 MG DAILY
  2. MAXZIDE [Concomitant]
     Indication: JOINT SWELLING
     Dosage: UNK, DAILY
  3. ZOLOFT [Concomitant]
     Indication: PROPHYLAXIS
     Dosage: UNK, DAILY

REACTIONS (2)
  - GAIT DISTURBANCE [None]
  - ARTHRALGIA [None]
